FAERS Safety Report 4625864-8 (Version None)
Quarter: 2005Q1

REPORT INFORMATION
  Report Type: 
  Country: None (occurrence: None)
  Receive Date: 20050330
  Receipt Date: 20050314
  Transmission Date: 20050727
  Serious: Yes (Hospitalization)
  Sender: FDA-Public Use
  Company Number: 2005CG00535

PATIENT
  Age: 83 Year
  Sex: Male
  Weight: 80 kg

DRUGS (10)
  1. SYMBICORT TURBUHALER ^DRACO^ [Suspect]
     Dosage: 2 DF BID IH
     Route: 055
     Dates: start: 20050129, end: 20050130
  2. BRONKIREX [Suspect]
     Dosage: 1 DF TID PO
     Route: 048
     Dates: start: 20050129, end: 20050130
  3. EFFERALGAN [Suspect]
     Dosage: 2 DF TID PO
     Route: 048
     Dates: start: 20050129, end: 20050130
  4. NEXIUM [Concomitant]
  5. SOTALOL HCL [Concomitant]
  6. LIPANTHYL ^BRISTOL-MYERS SQUIBB^ [Concomitant]
  7. PROSCAR [Concomitant]
  8. LASILIX [Concomitant]
  9. POTASSUM GLUCONATE [Concomitant]
  10. XYZALL [Concomitant]

REACTIONS (8)
  - DERMATITIS BULLOUS [None]
  - EPIDERMAL NECROSIS [None]
  - HAEMATOCRIT DECREASED [None]
  - HAEMOGLOBIN DECREASED [None]
  - PETECHIAE [None]
  - PLATELET COUNT INCREASED [None]
  - RED BLOOD CELL COUNT DECREASED [None]
  - VASCULAR PURPURA [None]
